FAERS Safety Report 17985718 (Version 1)
Quarter: 2020Q3

REPORT INFORMATION
  Report Type: Spontaneous
  Country: FR (occurrence: FR)
  Receive Date: 20200706
  Receipt Date: 20200706
  Transmission Date: 20201103
  Serious: Yes (Other)
  Sender: FDA-Public Use
  Company Number: FR-BAYER-2020-129297

PATIENT
  Age: 67 Year
  Sex: Male
  Weight: 71 kg

DRUGS (10)
  1. EUPRESSYL [URAPIDIL HYDROCHLORIDE] [Concomitant]
     Active Substance: URAPIDIL HYDROCHLORIDE
     Indication: HYPERTENSION
     Dosage: 60 MG, QD
     Route: 048
  2. DUROGESIC [Concomitant]
     Active Substance: FENTANYL
     Indication: PAIN
     Route: 062
  3. PANTOPRAZOLE [Concomitant]
     Active Substance: PANTOPRAZOLE
     Indication: PRODUCT USED FOR UNKNOWN INDICATION
     Dosage: UNK
     Route: 048
  4. UROREC [Concomitant]
     Active Substance: SILODOSIN
     Indication: PRODUCT USED FOR UNKNOWN INDICATION
     Dosage: 4 MG, G?LULE
     Route: 048
  5. ASPIRINE PROTECT 100 MG [Concomitant]
     Active Substance: ASPIRIN
     Indication: CARDIOVASCULAR EVENT PROPHYLAXIS
     Route: 048
  6. NEXAVAR [Suspect]
     Active Substance: SORAFENIB
     Indication: HEPATOCELLULAR CARCINOMA
     Dosage: 2 DF, QD
     Route: 048
     Dates: start: 20200601, end: 20200601
  7. CERTICAN [Concomitant]
     Active Substance: EVEROLIMUS
     Indication: TRANSPLANT
     Route: 048
     Dates: start: 20200519
  8. OXYNORMORO [Concomitant]
     Active Substance: OXYCODONE HYDROCHLORIDE
     Indication: PAIN
     Dosage: UNK
     Route: 048
  9. INNOHEP [Concomitant]
     Active Substance: TINZAPARIN SODIUM
     Route: 058
  10. DOLIPRANE [Concomitant]
     Active Substance: ACETAMINOPHEN
     Indication: PAIN
     Dosage: UNK
     Route: 048

REACTIONS (4)
  - Diarrhoea [Recovered/Resolved]
  - Vomiting [Recovered/Resolved]
  - Cough [Recovered/Resolved]
  - Abdominal pain [Recovered/Resolved]

NARRATIVE: CASE EVENT DATE: 20200601
